FAERS Safety Report 6539281-7 (Version None)
Quarter: 2010Q1

REPORT INFORMATION
  Report Type: 
  Country: None (occurrence: None)
  Receive Date: 20100115
  Receipt Date: 20100107
  Transmission Date: 20100710
  Serious: Yes (Other)
  Sender: FDA-Public Use
  Company Number: US-JNJFOC-20100103586

PATIENT
  Sex: Male
  Weight: 108.86 kg

DRUGS (10)
  1. DURAGESIC-100 [Suspect]
     Indication: PAIN
     Route: 062
  2. DURAGESIC-100 [Suspect]
     Route: 062
  3. PERCOCET [Concomitant]
     Indication: PAIN
     Dosage: 10/650 MG
     Route: 048
  4. LOPID [Concomitant]
     Indication: DIABETES MELLITUS
     Route: 048
  5. ASPIRIN [Concomitant]
     Indication: CARDIAC DISORDER
     Route: 048
  6. XANAX [Concomitant]
     Indication: SLEEP DISORDER
     Route: 048
  7. SOMA [Concomitant]
     Indication: MUSCLE RELAXANT THERAPY
     Route: 048
  8. PRILOSEC [Concomitant]
     Indication: DYSPEPSIA
  9. GLYBURIDE [Concomitant]
     Indication: DIABETES MELLITUS
     Route: 048
  10. LOPRESSOR [Concomitant]
     Indication: DIABETES MELLITUS
     Route: 048

REACTIONS (8)
  - DRUG DOSE OMISSION [None]
  - DRUG INEFFECTIVE [None]
  - FALL [None]
  - INADEQUATE ANALGESIA [None]
  - NAUSEA [None]
  - PARAESTHESIA [None]
  - PRODUCT QUALITY ISSUE [None]
  - WRONG TECHNIQUE IN DRUG USAGE PROCESS [None]
